FAERS Safety Report 4362815-8 (Version None)
Quarter: 2004Q2

REPORT INFORMATION
  Report Type: 
  Country: None (occurrence: None)
  Receive Date: 20040518
  Receipt Date: 20040430
  Transmission Date: 20050107
  Serious: Yes (Hospitalization)
  Sender: FDA-Public Use
  Company Number: DSA_24347_2004

PATIENT
  Age: 84 Year
  Sex: Female

DRUGS (16)
  1. ENALAPRIL MALEATE AND HYDROCHLOROTHIAZIDE [Suspect]
     Indication: HYPERTENSION
     Dosage: 1 TAB Q DAY PO
     Route: 048
     Dates: end: 20040416
  2. COLCHICINE [Suspect]
     Indication: GOUT
     Dosage: 0.5 MG QD PO
     Route: 048
     Dates: start: 20040115, end: 20040315
  3. COLCHICINE [Suspect]
     Indication: GOUT
     Dosage: 1 MG QD PO
     Route: 048
     Dates: start: 20040315, end: 20040415
  4. IMPORTAL [Suspect]
     Dosage: 10 MG QD PO
     Route: 048
     Dates: end: 20040415
  5. TORSEMIDE [Suspect]
     Indication: OEDEMA
     Dosage: 20 MG Q DAY PO
     Route: 048
     Dates: end: 20040416
  6. PROXEN [Suspect]
     Indication: PAIN
     Dosage: 1500 MG Q DAY PO
     Route: 048
     Dates: end: 20040416
  7. COLCHICINE [Suspect]
     Indication: GOUT
     Dosage: 0.5 MG Q DAY PO
     Route: 048
     Dates: start: 20040416
  8. SINTROM [Concomitant]
  9. DURAGESIC [Concomitant]
  10. PREDNISONE [Concomitant]
  11. SINQUAN [Concomitant]
  12. HALCION [Concomitant]
  13. CALCIMAGON-D3 [Concomitant]
  14. ANTRA [Concomitant]
  15. NORVASC [Concomitant]
  16. ACETAMINOPHEN (DALFALGAN) [Concomitant]

REACTIONS (7)
  - ARTHRALGIA [None]
  - CONDITION AGGRAVATED [None]
  - DECREASED APPETITE [None]
  - DIARRHOEA [None]
  - DRUG INTERACTION [None]
  - GENERAL PHYSICAL HEALTH DETERIORATION [None]
  - RENAL FAILURE [None]
